FAERS Safety Report 9280118 (Version 1)
Quarter: 2013Q2

REPORT INFORMATION
  Report Type: Spontaneous
  Country: ES (occurrence: ES)
  Receive Date: 20130509
  Receipt Date: 20130509
  Transmission Date: 20140414
  Serious: Yes (Other)
  Sender: FDA-Public Use
  Company Number: ES-AMGEN-ESPSP2013032050

PATIENT
  Sex: Female

DRUGS (3)
  1. NEULASTA [Suspect]
     Indication: PROPHYLAXIS
     Dosage: UNK UNK, 24-26 HOURS AFTER CHEMO
     Dates: start: 20130503
  2. MYOCET [Concomitant]
     Indication: BREAST CANCER
     Dosage: 60 MG/M2, UNK
  3. CYCLOPHOSPHAMIDE [Concomitant]
     Indication: BREAST CANCER
     Dosage: 600 MG/M2, UNK

REACTIONS (6)
  - Anaphylactoid reaction [Unknown]
  - Anaphylactic reaction [Unknown]
  - Pruritus [Unknown]
  - Feeling hot [Unknown]
  - Rash [Unknown]
  - Urticaria [Unknown]
